FAERS Safety Report 7737894-8 (Version None)
Quarter: 2011Q3

REPORT INFORMATION
  Report Type: 
  Country: None (occurrence: None)
  Receive Date: 20110908
  Receipt Date: 20110902
  Transmission Date: 20111222
  Serious: Yes (Hospitalization, Other)
  Sender: FDA-Public Use
  Company Number: PHEH2008US02876

PATIENT
  Sex: Female
  Weight: 88.435 kg

DRUGS (57)
  1. VERAPAMIL [Concomitant]
  2. VITAMIN B [Concomitant]
     Dosage: UNK
  3. POTASSIUM CHLORIDE [Concomitant]
  4. PREVACID [Concomitant]
  5. AMITRIPTYLINE HCL [Concomitant]
     Indication: PAIN
     Dosage: UNK
  6. CYMBALTA [Concomitant]
     Dosage: 60 MG, QAM
  7. HYDROXYZINE [Concomitant]
     Dosage: 25 MG / BID
  8. DECADRON [Concomitant]
     Dosage: 40 MG, QD FOR FOUR DAYS EVERY TWO WEEKS
  9. ADRIAMYCIN PFS [Concomitant]
  10. EFFEXOR [Concomitant]
  11. AREDIA [Suspect]
     Dosage: UNK UKN, UNK
  12. VERSED [Concomitant]
     Dosage: 1 MG, UNK
     Dates: start: 20060523
  13. LORAZEPAM [Concomitant]
     Indication: ANXIETY
     Dosage: UNK
  14. GABAPENTIN [Concomitant]
     Dosage: UNK
  15. CITALOPRAM HYDROBROMIDE [Concomitant]
     Dosage: 40 MG / DAILY
  16. MULTI-VITAMINS [Concomitant]
     Dosage: UNK
  17. PHENERGAN [Concomitant]
  18. LACTULOSE [Concomitant]
  19. ZOFRAN [Concomitant]
     Dosage: 8 MG, UNK
     Route: 042
     Dates: start: 20060523
  20. HYDROCODONE [Concomitant]
     Indication: PAIN
     Dosage: 10 MG
  21. VELCADE [Concomitant]
  22. CLAFORAN [Concomitant]
  23. ROCEPHIN [Concomitant]
  24. TYLENOL W/ CODEINE NO. 3 [Concomitant]
  25. FUROSEMIDE [Concomitant]
     Dosage: UNK
  26. KLOR-CON [Concomitant]
     Indication: BLOOD POTASSIUM
     Dosage: UNK
  27. DEPLIN [Concomitant]
     Dosage: 7.5 MG./ DAILY
  28. PREDNISONE [Concomitant]
     Dosage: UNK
     Dates: start: 20020101
  29. PROTONIX [Concomitant]
  30. LEXAPRO [Concomitant]
  31. CAPTOPRIL [Concomitant]
     Dosage: UNK
  32. ULTRAM [Concomitant]
  33. ATENOLOL [Concomitant]
  34. ANCEF [Concomitant]
     Dosage: 1 G, UNK
     Dates: start: 20060522
  35. CALCIUM GLUCONATE [Concomitant]
     Dosage: UNK
     Dates: start: 20060523
  36. PROCRIT [Concomitant]
     Dosage: 40000 U, UNK
     Dates: start: 20060523
  37. METHADONE HCL [Concomitant]
     Indication: PAIN
     Dosage: UNK
  38. CELEXA [Concomitant]
     Indication: DEPRESSION
     Dosage: UNK
  39. CLINDAMYCIN [Concomitant]
     Dosage: UNK
  40. THALIDOMIDE [Concomitant]
     Dosage: 100 MG, UNK
  41. THALIDOMIDE [Concomitant]
     Dosage: 50 MG, UNK
  42. VIOXX [Concomitant]
     Dosage: UNK
  43. MAGNESIUM [Concomitant]
  44. ZOLOFT [Concomitant]
  45. ZOMETA [Suspect]
     Indication: NEOPLASM MALIGNANT
     Dosage: 4 MG, QMO
     Route: 042
     Dates: start: 20020924, end: 20070101
  46. ATIVAN [Concomitant]
  47. TYLENOL-500 [Concomitant]
     Dosage: 975 MG, UNK
     Dates: start: 20060523
  48. FENTANYL-100 [Concomitant]
     Dosage: 50 UG, UNK
     Dates: start: 20060523
  49. CHEMOTHERAPEUTICS NOS [Concomitant]
  50. LUNESTA [Concomitant]
     Dosage: 3 MG
  51. NEURONTIN [Concomitant]
     Dosage: 300 MG / BID
  52. NIFEREX (POLYSACCHARIDE-IRON COMPLEX) [Concomitant]
  53. ARANESP [Concomitant]
  54. DIOVAN HCT [Concomitant]
     Indication: HYPERTENSION
     Dosage: UNK
  55. MELPHALAN [Concomitant]
     Dosage: 340 MG, UNK
     Dates: start: 20020101
  56. THALIDOMIDE [Concomitant]
     Dosage: 150 MG, UNK
     Dates: start: 20050501, end: 20060101
  57. PROPRANOLOL [Concomitant]
     Dosage: UNK

REACTIONS (87)
  - PLEURITIC PAIN [None]
  - ANXIETY [None]
  - DEPRESSION [None]
  - NAUSEA [None]
  - PSYCHOMOTOR HYPERACTIVITY [None]
  - CONSTIPATION [None]
  - DIARRHOEA [None]
  - CEREBRAL ATROPHY [None]
  - MULTIPLE MYELOMA [None]
  - EMOTIONAL DISTRESS [None]
  - OSTEITIS [None]
  - AFFECTIVE DISORDER [None]
  - EAR CONGESTION [None]
  - NIGHT SWEATS [None]
  - DYSPNOEA EXERTIONAL [None]
  - LUMBAR SPINAL STENOSIS [None]
  - CARDIOMEGALY [None]
  - GASTROOESOPHAGEAL REFLUX DISEASE [None]
  - OSTEOPOROSIS [None]
  - INCREASED TENDENCY TO BRUISE [None]
  - INFLUENZA [None]
  - ACUTE SINUSITIS [None]
  - CYSTITIS [None]
  - ABDOMINAL PAIN [None]
  - DYSPHAGIA [None]
  - HEADACHE [None]
  - BONE PAIN [None]
  - DENTAL CARIES [None]
  - ARTHRITIS [None]
  - ULCER [None]
  - OEDEMA PERIPHERAL [None]
  - COUGH [None]
  - MYELODYSPLASTIC SYNDROME [None]
  - HAEMATOCHEZIA [None]
  - PAIN [None]
  - SCAR [None]
  - CELLULITIS STAPHYLOCOCCAL [None]
  - VISION BLURRED [None]
  - OEDEMA [None]
  - TEMPOROMANDIBULAR JOINT SYNDROME [None]
  - NEUROPATHY PERIPHERAL [None]
  - PARAESTHESIA [None]
  - PHARYNGITIS [None]
  - HYPOACUSIS [None]
  - ASTHMA [None]
  - INCONTINENCE [None]
  - PYREXIA [None]
  - OSTEONECROSIS OF JAW [None]
  - BONE DISORDER [None]
  - ANAEMIA [None]
  - MALAISE [None]
  - COMPRESSION FRACTURE [None]
  - HOT FLUSH [None]
  - HAEMORRHOIDS [None]
  - FALL [None]
  - HIATUS HERNIA [None]
  - FUNGAL INFECTION [None]
  - MASTICATION DISORDER [None]
  - RENAL CYST [None]
  - NERVOUSNESS [None]
  - ARTHRALGIA [None]
  - INSOMNIA [None]
  - BRONCHITIS [None]
  - TOOTHACHE [None]
  - ORAL PAIN [None]
  - HYPERAESTHESIA [None]
  - CONFUSIONAL STATE [None]
  - VENOUS THROMBOSIS LIMB [None]
  - GINGIVAL PAIN [None]
  - BLADDER CYST [None]
  - DECUBITUS ULCER [None]
  - LEUKOPENIA [None]
  - GAIT DISTURBANCE [None]
  - UPPER RESPIRATORY TRACT INFECTION [None]
  - INTERVERTEBRAL DISC DEGENERATION [None]
  - INJURY [None]
  - FACET JOINT SYNDROME [None]
  - THROMBOSIS IN DEVICE [None]
  - PAIN IN JAW [None]
  - HYPERTENSION [None]
  - MONOCLONAL IMMUNOGLOBULIN PRESENT [None]
  - SYNCOPE [None]
  - BLOOD PRESSURE INCREASED [None]
  - MUSCULOSKELETAL DISCOMFORT [None]
  - TREMOR [None]
  - THROMBOCYTOPENIA [None]
  - WEIGHT INCREASED [None]
